FAERS Safety Report 24773518 (Version 1)
Quarter: 2024Q4

REPORT INFORMATION
  Report Type: Report from Study
  Country: CN (occurrence: CN)
  Receive Date: 20241225
  Receipt Date: 20241225
  Transmission Date: 20250115
  Serious: Yes (Other)
  Sender: ROCHE
  Company Number: CN-ROCHE-10000161861

PATIENT

DRUGS (9)
  1. BEVACIZUMAB [Suspect]
     Active Substance: BEVACIZUMAB
     Indication: Colorectal cancer metastatic
     Dosage: 21-DAY CYCLE COMBINED WITH XELOX OR 5 MG/KG 14-DAY CYCLE COMBINED WITH FOLFOX, FOLFIRI, OR FOLFOXIRI
     Route: 042
  2. CAPECITABINE [Suspect]
     Active Substance: CAPECITABINE
     Indication: Colorectal cancer metastatic
     Dosage: 1 G/M2. ON DAYS 1 TO 14 OF THE 21-DAY CYCLE
     Route: 042
  3. FLUOROURACIL [Suspect]
     Active Substance: FLUOROURACIL
     Indication: Colorectal cancer metastatic
     Dosage: ON DAY 1 WITH SUBSEQUENT 2.4 G/M2 X 46 HOURS CONTINUOUS INTRAVENOUS INFUSION REPEATED EVERY 14 DAYS.
     Route: 042
  4. OXALIPLATIN [Suspect]
     Active Substance: OXALIPLATIN
     Indication: Colorectal cancer metastatic
     Dosage: ON DAY 1
     Route: 042
  5. OXALIPLATIN [Suspect]
     Active Substance: OXALIPLATIN
     Route: 042
  6. LEUCOVORIN [Suspect]
     Active Substance: LEUCOVORIN\LEUCOVORIN CALCIUM
     Indication: Colorectal cancer metastatic
     Route: 042
  7. IRINOTECAN [Suspect]
     Active Substance: IRINOTECAN
     Indication: Colorectal cancer metastatic
     Route: 042
  8. IRINOTECAN [Suspect]
     Active Substance: IRINOTECAN
     Route: 042
  9. BEVACIZUMAB [Suspect]
     Active Substance: BEVACIZUMAB
     Indication: Colorectal cancer metastatic
     Dosage: 21-DAY CYCLE COMBINED WITH XELOX OR 5 MG/KG 14-DAY CYCLE COMBINED WITH FOLFOX, FOLFIRI, OR FOLFOXIRI
     Route: 042

REACTIONS (66)
  - Anaemia [Unknown]
  - Febrile neutropenia [Unknown]
  - Leukopenia [Unknown]
  - Neutropenia [Unknown]
  - Thrombocytopenia [Unknown]
  - Palpitations [Unknown]
  - Ventricular arrhythmia [Unknown]
  - Abdominal distension [Unknown]
  - Abdominal pain [Unknown]
  - Large intestine perforation [Unknown]
  - Constipation [Unknown]
  - Diarrhoea [Unknown]
  - Dyspepsia [Unknown]
  - Intestinal obstruction [Unknown]
  - Lower gastrointestinal haemorrhage [Unknown]
  - Stomatitis [Unknown]
  - Nausea [Unknown]
  - Toothache [Unknown]
  - Vomiting [Unknown]
  - Chills [Unknown]
  - Oedema peripheral [Unknown]
  - Fatigue [Unknown]
  - Pyrexia [Unknown]
  - Pain [Unknown]
  - Hypersensitivity [Unknown]
  - Abdominal infection [Unknown]
  - Enterocolitis infectious [Unknown]
  - Gingivitis [Unknown]
  - Pneumonia [Unknown]
  - Upper respiratory tract infection [Unknown]
  - Activated partial thromboplastin time prolonged [Unknown]
  - Alanine aminotransferase increased [Unknown]
  - Aspartate aminotransferase increased [Unknown]
  - Blood bilirubin increased [Unknown]
  - International normalised ratio increased [Unknown]
  - Blood thyroid stimulating hormone increased [Unknown]
  - Hypercalcaemia [Unknown]
  - Hyperglycaemia [Unknown]
  - Hyperkalaemia [Unknown]
  - Hypernatraemia [Unknown]
  - Hyperphosphataemia [Unknown]
  - Hyperuricaemia [Unknown]
  - Hypoalbuminaemia [Unknown]
  - Hypocalcaemia [Unknown]
  - Hypokalaemia [Unknown]
  - Hypomagnesaemia [Unknown]
  - Hyponatraemia [Unknown]
  - Hypophosphataemia [Unknown]
  - Decreased appetite [Unknown]
  - Weight decreased [Unknown]
  - Dizziness [Unknown]
  - Dysgeusia [Unknown]
  - Headache [Unknown]
  - Hypersomnia [Unknown]
  - Insomnia [Unknown]
  - Peripheral sensory neuropathy [Unknown]
  - Cough [Unknown]
  - Epistaxis [Unknown]
  - Hiccups [Unknown]
  - Palmar-plantar erythrodysaesthesia syndrome [Unknown]
  - Hyperhidrosis [Unknown]
  - Blood creatinine increased [Unknown]
  - Proteinuria [Unknown]
  - Haemorrhage [Unknown]
  - Hypertension [Unknown]
  - Embolism [Unknown]
